FAERS Safety Report 6251927-X (Version None)
Quarter: 2009Q2

REPORT INFORMATION
  Report Type: 
  Country: None (occurrence: None)
  Receive Date: 20090630
  Receipt Date: 20090618
  Transmission Date: 20091009
  Serious: Yes (Hospitalization)
  Sender: FDA-Public Use
  Company Number: FR-ELI_LILLY_AND_COMPANY-FR200906004231

PATIENT
  Age: 76 Year
  Sex: Female

DRUGS (6)
  1. ZYPREXA [Suspect]
     Dosage: 5 MG, UNK
     Route: 048
  2. TERALITHE [Concomitant]
     Dosage: 250 MG, DAILY (1/D)
     Route: 048
  3. NOZINAN [Concomitant]
     Dosage: 25 MG, DAILY (1/D)
     Route: 048
  4. NOCTAMIDE [Concomitant]
     Dosage: 2 D/F, DAILY (1/D)
     Route: 048
  5. LEPTICUR [Concomitant]
     Dosage: 25 MG, DAILY (1/D)
     Route: 048
  6. KARDEGIC [Concomitant]
     Dosage: 75 MG, UNK
     Route: 048

REACTIONS (2)
  - FALL [None]
  - FEMORAL NECK FRACTURE [None]
